FAERS Safety Report 13898074 (Version 1)
Quarter: 2017Q3

REPORT INFORMATION
  Report Type: Spontaneous
  Country: US (occurrence: US)
  Receive Date: 20170823
  Receipt Date: 20170823
  Transmission Date: 20171127
  Serious: No
  Sender: FDA-Public Use
  Company Number: US-BAYER-2015-373460

PATIENT
  Sex: Female

DRUGS (1)
  1. BETASERON [Suspect]
     Active Substance: INTERFERON BETA-1B

REACTIONS (8)
  - Fatigue [None]
  - Influenza like illness [None]
  - Adverse drug reaction [None]
  - Body temperature increased [None]
  - Asthenia [None]
  - Nausea [None]
  - Abdominal discomfort [None]
  - Diarrhoea [None]
